FAERS Safety Report 4755380-4 (Version None)
Quarter: 2005Q3

REPORT INFORMATION
  Report Type: 
  Country: None (occurrence: None)
  Receive Date: 20050826
  Receipt Date: 20041019
  Transmission Date: 20060218
  Serious: Yes (Death)
  Sender: FDA-Public Use
  Company Number: USA-2002-0001704

PATIENT
  Age: 26 Year
  Sex: Male

DRUGS (3)
  1. OXYCONTIN [Suspect]
  2. SOMA [Suspect]
  3. ALCOHOL (ETHANOL) [Suspect]

REACTIONS (3)
  - ACCIDENTAL OVERDOSE [None]
  - ANOREXIA [None]
  - CARDIAC ARREST [None]
